FAERS Safety Report 4440430-5 (Version None)
Quarter: 2004Q3

REPORT INFORMATION
  Report Type: 
  Country: None (occurrence: None)
  Receive Date: 20040903
  Receipt Date: 20040826
  Transmission Date: 20050211
  Serious: Yes (Death, Other)
  Sender: FDA-Public Use
  Company Number: US-JNJFOC-20040809421

PATIENT
  Sex: Female
  Weight: 51.71 kg

DRUGS (2)
  1. REMICADE [Suspect]
     Indication: CROHN'S DISEASE
     Route: 042
  2. PENTASA [Concomitant]

REACTIONS (8)
  - ABSCESS [None]
  - CHILLS [None]
  - GASTROINTESTINAL DISORDER [None]
  - PAIN [None]
  - POST PROCEDURAL COMPLICATION [None]
  - RASH ERYTHEMATOUS [None]
  - RHINORRHOEA [None]
  - SEPSIS [None]
